FAERS Safety Report 6035087-6 (Version None)
Quarter: 2009Q1

REPORT INFORMATION
  Report Type: 
  Country: None (occurrence: None)
  Receive Date: 20090112
  Receipt Date: 20090107
  Transmission Date: 20090719
  Serious: Yes (Other)
  Sender: FDA-Public Use
  Company Number: ES-ROXANE LABORATORIES, INC.-2009-RO-00025RO

PATIENT
  Age: 39 Year
  Sex: Male

DRUGS (3)
  1. METHOTREXATE [Suspect]
     Indication: ACUTE LYMPHOCYTIC LEUKAEMIA
     Route: 042
  2. GEMFIBROZIL [Suspect]
     Indication: HYPERLIPIDAEMIA
  3. CPDG2 [Concomitant]
     Indication: RENAL FAILURE ACUTE
     Route: 042

REACTIONS (4)
  - DRUG INTERACTION [None]
  - MUCOSAL INFLAMMATION [None]
  - NEPHROPATHY TOXIC [None]
  - RENAL FAILURE ACUTE [None]
